FAERS Safety Report 10873426 (Version 1)
Quarter: 2015Q1

REPORT INFORMATION
  Report Type: Spontaneous
  Country: US (occurrence: US)
  Receive Date: 20150227
  Receipt Date: 20150227
  Transmission Date: 20150721
  Serious: No
  Sender: FDA-Public Use
  Company Number: US-ASTRAZENECA-2015SE16261

PATIENT
  Sex: Female

DRUGS (4)
  1. MEDICAS [Concomitant]
     Indication: BLOOD PRESSURE INCREASED
  2. METFORMAN [Concomitant]
  3. GYLGURIBE [Concomitant]
  4. CRESTOR [Suspect]
     Active Substance: ROSUVASTATIN CALCIUM
     Route: 048

REACTIONS (2)
  - Muscle spasms [Unknown]
  - Paraesthesia [Unknown]

NARRATIVE: CASE EVENT DATE: 201502
